FAERS Safety Report 10188824 (Version 1)
Quarter: 2014Q2

REPORT INFORMATION
  Report Type: Spontaneous
  Country: US (occurrence: US)
  Receive Date: 20140522
  Receipt Date: 20140522
  Transmission Date: 20141212
  Serious: No
  Sender: FDA-Public Use
  Company Number: US-SA-2014SA024905

PATIENT
  Sex: Male

DRUGS (2)
  1. LANTUS [Suspect]
     Route: 051
  2. HUMALIN [Suspect]
     Route: 065

REACTIONS (3)
  - Visual impairment [Unknown]
  - Pain in extremity [Unknown]
  - Gait disturbance [Unknown]
